FAERS Safety Report 25817308 (Version 1)
Quarter: 2025Q3

REPORT INFORMATION
  Report Type: Spontaneous
  Country: US (occurrence: US)
  Receive Date: 20250918
  Receipt Date: 20250918
  Transmission Date: 20251020
  Serious: No
  Sender: PFIZER
  Company Number: US-PFIZER INC-202500129976

PATIENT
  Age: 84 Year
  Sex: Male
  Weight: 80.544 kg

DRUGS (3)
  1. TALZENNA [Suspect]
     Active Substance: TALAZOPARIB TOSYLATE
     Indication: Prostate cancer metastatic
     Dosage: 0.75 MG, DAILY
     Route: 048
     Dates: start: 2025
  2. TALZENNA [Suspect]
     Active Substance: TALAZOPARIB TOSYLATE
     Indication: Metastatic carcinoma of the bladder
     Dosage: 0.35 MG, DAILY
     Route: 048
     Dates: start: 20250822
  3. TALZENNA [Suspect]
     Active Substance: TALAZOPARIB TOSYLATE
     Indication: BRCA2 gene mutation

REACTIONS (1)
  - Peripheral swelling [Unknown]

NARRATIVE: CASE EVENT DATE: 20250101
